FAERS Safety Report 11433153 (Version 2)
Quarter: 2015Q3

REPORT INFORMATION
  Report Type: Spontaneous
  Country: US (occurrence: US)
  Receive Date: 20150829
  Receipt Date: 20150921
  Transmission Date: 20151125
  Serious: Yes (Hospitalization, Other)
  Sender: FDA-Public Use
  Company Number: US-AUROBINDO-AUR-APU-2015-07473

PATIENT
  Sex: Male

DRUGS (1)
  1. CEPHALEXIN 500 MG [Suspect]
     Active Substance: CEPHALEXIN
     Indication: PROPHYLAXIS
     Dosage: 500 MG, UNK
     Route: 065

REACTIONS (4)
  - Medication residue present [Unknown]
  - Pyrexia [Unknown]
  - Malaise [Unknown]
  - Sepsis [Unknown]
